FAERS Safety Report 5949073-5 (Version None)
Quarter: 2008Q4

REPORT INFORMATION
  Report Type: 
  Country: None (occurrence: None)
  Receive Date: 20081111
  Receipt Date: 20081030
  Transmission Date: 20090506
  Serious: Yes (Other)
  Sender: FDA-Public Use
  Company Number: FR-PFIZER INC-2008092542

PATIENT
  Age: 80 Year

DRUGS (1)
  1. SUTENT [Suspect]
     Indication: RENAL CANCER

REACTIONS (1)
  - GASTROINTESTINAL TOXICITY [None]
